FAERS Safety Report 8112769-3 (Version None)
Quarter: 2012Q1

REPORT INFORMATION
  Report Type: 
  Country: None (occurrence: None)
  Receive Date: 20120203
  Receipt Date: 20120201
  Transmission Date: 20120608
  Serious: Yes (Other)
  Sender: FDA-Public Use
  Company Number: CA-BAYER-2012-009823

PATIENT
  Age: 43 Year
  Sex: Female

DRUGS (10)
  1. INTERFERON BETA-1B [Suspect]
     Indication: MULTIPLE SCLEROSIS
     Dosage: 0.25 MG, UNK
     Dates: start: 20060101, end: 20120201
  2. ASCORBIC ACID [Concomitant]
  3. TIAZAC [Concomitant]
  4. VITAMIN E [Concomitant]
  5. CELEXA [Concomitant]
  6. RABEPRAZOLE SODIUM [Concomitant]
  7. VITAMIN B-12 [Concomitant]
  8. ALTACE [Concomitant]
  9. HYDROCHLOROTHIAZIDE [Concomitant]
  10. FLONASE [Concomitant]

REACTIONS (3)
  - INFECTION [None]
  - CHILLS [None]
  - PYREXIA [None]
